FAERS Safety Report 6149770-5 (Version None)
Quarter: 2009Q2

REPORT INFORMATION
  Report Type: 
  Country: None (occurrence: None)
  Receive Date: 20090407
  Receipt Date: 20090327
  Transmission Date: 20091009
  Serious: Yes (Hospitalization, Disabling)
  Sender: FDA-Public Use
  Company Number: WAES 0802USA05938

PATIENT
  Age: 67 Year
  Sex: Male

DRUGS (16)
  1. CAP VORINOSTAT [Suspect]
     Indication: NON-SMALL CELL LUNG CANCER
     Dosage: 400 MG/DAILY PO
     Route: 048
     Dates: start: 20080211, end: 20080225
  2. CAP VORINOSTAT [Suspect]
     Indication: NON-SMALL CELL LUNG CANCER
     Dosage: 400 MG/DAILY PO
     Route: 048
     Dates: start: 20080313, end: 20080323
  3. CAP VORINOSTAT [Suspect]
     Indication: NON-SMALL CELL LUNG CANCER
     Dosage: 400 MG/DAILY PO
     Route: 048
     Dates: start: 20080404, end: 20080415
  4. CARBOPLATIN [Suspect]
     Indication: NON-SMALL CELL LUNG CANCER
     Dosage: 546 MG/DAILY IV 472.9 MG/DAILY IV 536 MG/DAILY IV
     Route: 042
     Dates: start: 20080214, end: 20080214
  5. CARBOPLATIN [Suspect]
     Indication: NON-SMALL CELL LUNG CANCER
     Dosage: 546 MG/DAILY IV 472.9 MG/DAILY IV 536 MG/DAILY IV
     Route: 042
     Dates: start: 20080313, end: 20080313
  6. CARBOPLATIN [Suspect]
     Indication: NON-SMALL CELL LUNG CANCER
     Dosage: 546 MG/DAILY IV 472.9 MG/DAILY IV 536 MG/DAILY IV
     Route: 042
     Dates: start: 20080404, end: 20080404
  7. PACLITAXEL [Suspect]
     Indication: NON-SMALL CELL LUNG CANCER
     Dosage: 376 MG/DAILY IV 322 MG/DAILY IV 320 MG/DAILY IV
     Route: 042
     Dates: start: 20080214, end: 20080214
  8. PACLITAXEL [Suspect]
     Indication: NON-SMALL CELL LUNG CANCER
     Dosage: 376 MG/DAILY IV 322 MG/DAILY IV 320 MG/DAILY IV
     Route: 042
     Dates: start: 20080313, end: 20080313
  9. PACLITAXEL [Suspect]
     Indication: NON-SMALL CELL LUNG CANCER
     Dosage: 376 MG/DAILY IV 322 MG/DAILY IV 320 MG/DAILY IV
     Route: 042
     Dates: start: 20080404, end: 20080404
  10. TRAMADOL HCL [Concomitant]
  11. THERAPY UNSPECIFIED [Concomitant]
  12. ALPRAZOLAM [Concomitant]
  13. DEXAMETHASONE TAB [Concomitant]
  14. OMEPRAZOLE [Concomitant]
  15. ONDANSETRON [Concomitant]
  16. RANITIDINE [Concomitant]

REACTIONS (22)
  - ANAEMIA [None]
  - ASPARTATE AMINOTRANSFERASE INCREASED [None]
  - ASTHENIA [None]
  - BLOOD CREATININE INCREASED [None]
  - BLOOD PRESSURE DECREASED [None]
  - CONSTIPATION [None]
  - DIARRHOEA [None]
  - FEBRILE NEUTROPENIA [None]
  - HEADACHE [None]
  - HYPERGLYCAEMIA [None]
  - HYPERHIDROSIS [None]
  - HYPOALBUMINAEMIA [None]
  - HYPOCALCAEMIA [None]
  - HYPOKALAEMIA [None]
  - HYPONATRAEMIA [None]
  - HYPOPHOSPHATAEMIA [None]
  - HYPOTENSION [None]
  - HYPOVOLAEMIC SHOCK [None]
  - INSOMNIA [None]
  - PNEUMONIA [None]
  - SEPSIS [None]
  - THROMBOCYTOPENIA [None]
